FAERS Safety Report 20813937 (Version 1)
Quarter: 2022Q2

REPORT INFORMATION
  Report Type: Report from Study
  Country: BR (occurrence: BR)
  Receive Date: 20220511
  Receipt Date: 20220511
  Transmission Date: 20220721
  Serious: Yes (Other)
  Sender: FDA-Public Use
  Company Number: BR-ABBVIE-22K-020-4385086-00

PATIENT
  Sex: Female

DRUGS (2)
  1. RINVOQ [Suspect]
     Active Substance: UPADACITINIB
     Indication: Rheumatoid arthritis
     Route: 048
     Dates: start: 20211108
  2. LOSARTAN [Concomitant]
     Active Substance: LOSARTAN
     Indication: Hypertension

REACTIONS (3)
  - Gingival discolouration [Recovering/Resolving]
  - Weight decreased [Unknown]
  - Speech disorder [Not Recovered/Not Resolved]

NARRATIVE: CASE EVENT DATE: 20220101
